FAERS Safety Report 12586465 (Version 1)
Quarter: 2016Q3

REPORT INFORMATION
  Report Type: Spontaneous
  Country: US (occurrence: US)
  Receive Date: 20160725
  Receipt Date: 20160725
  Transmission Date: 20161109
  Serious: No
  Sender: FDA-Public Use
  Company Number: US-PFIZER INC-2016197952

PATIENT
  Sex: Female

DRUGS (8)
  1. CARBOPLATIN. [Suspect]
     Active Substance: CARBOPLATIN
     Dosage: UNK
     Dates: start: 20151119
  2. CARBOPLATIN. [Suspect]
     Active Substance: CARBOPLATIN
     Indication: BREAST CANCER
     Dosage: 530 MG
     Dates: start: 20150701
  3. TAXOTERE [Suspect]
     Active Substance: DOCETAXEL
     Dosage: UNK
  4. CARBOPLATIN. [Suspect]
     Active Substance: CARBOPLATIN
     Dosage: 350 MG
     Dates: start: 20150917
  5. CARBOPLATIN. [Suspect]
     Active Substance: CARBOPLATIN
     Dosage: UNK
  6. CARBOPLATIN. [Suspect]
     Active Substance: CARBOPLATIN
     Dosage: 455 MG
     Dates: start: 20150801
  7. PERJETA [Suspect]
     Active Substance: PERTUZUMAB
     Dosage: UNK
  8. HERCEPTIN [Suspect]
     Active Substance: TRASTUZUMAB
     Dosage: UNK

REACTIONS (5)
  - Neuropathy peripheral [Recovered/Resolved]
  - Fatigue [Unknown]
  - Oesophageal disorder [Recovered/Resolved]
  - Skin exfoliation [Recovered/Resolved]
  - Stomatitis [Recovered/Resolved]

NARRATIVE: CASE EVENT DATE: 20150701
